FAERS Safety Report 18785323 (Version 1)
Quarter: 2021Q1

REPORT INFORMATION
  Report Type: Report from Study
  Country: IT (occurrence: IT)
  Receive Date: 20210125
  Receipt Date: 20210125
  Transmission Date: 20210419
  Serious: Yes (Hospitalization)
  Sender: FDA-Public Use
  Company Number: IT-PFIZER INC-2021049387

PATIENT
  Age: 66 Year
  Sex: Male

DRUGS (10)
  1. DIAMICRON [Concomitant]
     Active Substance: GLICLAZIDE
  2. XANAX [Suspect]
     Active Substance: ALPRAZOLAM
  3. CONCOR [Concomitant]
     Active Substance: BISOPROLOL FUMARATE
  4. OMNIC [Concomitant]
     Active Substance: TAMSULOSIN HYDROCHLORIDE
  5. ZARELIS [Concomitant]
     Active Substance: VENLAFAXINE HYDROCHLORIDE
  6. TAVOR (LORAZEPAM) [Suspect]
     Active Substance: LORAZEPAM
     Dosage: 15 DF, TOTAL
     Route: 048
     Dates: start: 20200419, end: 20200419
  7. TOUJEO [Concomitant]
     Active Substance: INSULIN GLARGINE
  8. TORVAST [Concomitant]
     Active Substance: ATORVASTATIN
  9. DEPAKIN CHRONO [VALPROATE SODIUM] [Concomitant]
     Active Substance: VALPROATE SODIUM
  10. CLOPIDOGREL KRKA [CLOPIDOGREL HYDROCHLORIDE] [Concomitant]
     Active Substance: CLOPIDOGREL HYDROCHLORIDE

REACTIONS (3)
  - Toxicity to various agents [Recovered/Resolved]
  - Sopor [Recovered/Resolved]
  - Bradycardia [Recovered/Resolved]

NARRATIVE: CASE EVENT DATE: 20200419
